FAERS Safety Report 21037882 (Version 1)
Quarter: 2022Q3

REPORT INFORMATION
  Report Type: Spontaneous
  Country: US (occurrence: US)
  Receive Date: 20220704
  Receipt Date: 20220704
  Transmission Date: 20221026
  Serious: Yes (Life-Threatening, Hospitalization, Other)
  Sender: FDA-Public Use
  Company Number: US-drreddys-LIT/USA/22/0151750

PATIENT
  Age: 40 Year
  Sex: Male

DRUGS (14)
  1. TACROLIMUS [Suspect]
     Active Substance: TACROLIMUS
     Indication: Immunosuppressant drug therapy
  2. TERBINAFINE [Suspect]
     Active Substance: TERBINAFINE
     Indication: Aspergillus infection
  3. RUXOLITINIB [Suspect]
     Active Substance: RUXOLITINIB
     Indication: Immunosuppressant drug therapy
  4. PREDNISONE [Suspect]
     Active Substance: PREDNISONE
     Indication: Immunosuppressant drug therapy
  5. ISAVUCONAZOLE [Suspect]
     Active Substance: ISAVUCONAZOLE
     Indication: Prophylaxis
  6. VORICONAZOLE [Suspect]
     Active Substance: VORICONAZOLE
     Indication: Aspergillus infection
     Dosage: 6 MG/KG TOTAL 400MG EVERY 12H FOR TWO DOSES
  7. VORICONAZOLE [Suspect]
     Active Substance: VORICONAZOLE
     Dosage: 4 MG/KG TOTAL 300MG EVERY 12H
  8. VORICONAZOLE [Suspect]
     Active Substance: VORICONAZOLE
     Dosage: AT INCREASED DOSE 550MG EVERY 12H
  9. MICAFUNGIN [Suspect]
     Active Substance: MICAFUNGIN
     Indication: Aspergillus infection
     Route: 042
  10. MICAFUNGIN [Suspect]
     Active Substance: MICAFUNGIN
     Dosage: IINCREASED TO 150MG DAILY
     Route: 042
  11. AMPHOTERICIN B [Suspect]
     Active Substance: AMPHOTERICIN B
     Indication: Aspergillus infection
     Route: 042
  12. AMPHOTERICIN B [Suspect]
     Active Substance: AMPHOTERICIN B
     Route: 042
  13. AMPICILLIN [Suspect]
     Active Substance: AMPICILLIN
     Indication: Endocarditis enterococcal
  14. CEFTRIAXONE [Suspect]
     Active Substance: CEFTRIAXONE
     Indication: Endocarditis enterococcal

REACTIONS (2)
  - Drug ineffective [Unknown]
  - Aspergillus infection [Recovering/Resolving]
